FAERS Safety Report 9670194 (Version 1)
Quarter: 2013Q4

REPORT INFORMATION
  Report Type: Spontaneous
  Country: US (occurrence: None)
  Receive Date: 20131104
  Receipt Date: 20131104
  Transmission Date: 20140711
  Serious: Yes (Other)
  Sender: FDA-Public Use
  Company Number: ADR-2013-01989

PATIENT
  Age: 41 Year
  Sex: Female

DRUGS (2)
  1. BACLOFEN INTRATHECAL [Suspect]
     Indication: MUSCLE SPASTICITY
  2. BACLOFEN [Suspect]
     Route: 048

REACTIONS (6)
  - Muscle spasticity [None]
  - Drug withdrawal syndrome [None]
  - Pruritus [None]
  - Drug effect decreased [None]
  - Device occlusion [None]
  - Adhesion [None]
